FAERS Safety Report 17046345 (Version 1)
Quarter: 2019Q4

REPORT INFORMATION
  Report Type: Spontaneous
  Country: CZ (occurrence: CZ)
  Receive Date: 20191119
  Receipt Date: 20191119
  Transmission Date: 20200122
  Serious: Yes (Other)
  Sender: FDA-Public Use
  Company Number: CZ-AUROBINDO-AUR-APL-2019-073216

PATIENT
  Age: 77 Year
  Sex: Male

DRUGS (9)
  1. TAMSULOSIN [Suspect]
     Active Substance: TAMSULOSIN
     Indication: BENIGN PROSTATIC HYPERPLASIA
     Dosage: UNK
     Route: 065
  2. RAMIPRIL. [Suspect]
     Active Substance: RAMIPRIL
     Indication: CARDIOVASCULAR DISORDER
     Dosage: 2.5 MILLIGRAM
     Route: 065
  3. METOPROLOL SUCCINATE. [Concomitant]
     Active Substance: METOPROLOL SUCCINATE
     Indication: ANGINA PECTORIS
     Dosage: 125 MILLIGRAM, ONCE A DAY
     Route: 065
  4. LOSEPRAZOL [Concomitant]
     Active Substance: OMEPRAZOLE
     Indication: GASTROOESOPHAGEAL REFLUX DISEASE
     Dosage: ONCE A DAY, (QD)
     Route: 065
  5. ROSUVASTATIN. [Suspect]
     Active Substance: ROSUVASTATIN
     Indication: CARDIOVASCULAR DISORDER
     Dosage: 40 MILLIGRAM, ONCE A DAY
     Route: 065
  6. MOLSIDOMINE [Suspect]
     Active Substance: MOLSIDOMINE
     Indication: ANGINA PECTORIS
     Dosage: UNK
     Route: 065
  7. TRIMETAZIDINE [Concomitant]
     Active Substance: TRIMETAZIDINE
     Indication: ANGINA PECTORIS
     Dosage: 70 MILLIGRAM, ONCE A DAY, (35 MG, BID)
     Route: 065
  8. FUROSEMID [Suspect]
     Active Substance: FUROSEMIDE
     Indication: CARDIOVASCULAR DISORDER
     Dosage: 20 MILLIGRAM, ONCE A DAY
     Route: 065
  9. ISOSORBIDE MONONITRATE. [Concomitant]
     Active Substance: ISOSORBIDE MONONITRATE
     Indication: ANGINA PECTORIS
     Dosage: UNK
     Route: 065

REACTIONS (4)
  - Atrial fibrillation [Unknown]
  - Bundle branch block left [Unknown]
  - Systolic dysfunction [Unknown]
  - Cardiac murmur [Unknown]
